FAERS Safety Report 5797277-7 (Version None)
Quarter: 2008Q3

REPORT INFORMATION
  Report Type: 
  Country: None (occurrence: None)
  Receive Date: 20080701
  Receipt Date: 20080619
  Transmission Date: 20090109
  Serious: Yes (Other)
  Sender: FDA-Public Use
  Company Number: US-PFIZER INC-2008052047

PATIENT
  Sex: Female

DRUGS (1)
  1. GEODON [Suspect]
     Route: 048

REACTIONS (2)
  - CHEST PAIN [None]
  - ELECTROCARDIOGRAM CHANGE [None]
